FAERS Safety Report 4685746-2 (Version None)
Quarter: 2005Q2

REPORT INFORMATION
  Report Type: 
  Country: None (occurrence: None)
  Receive Date: 20050608
  Receipt Date: 20050520
  Transmission Date: 20051028
  Serious: Yes (Hospitalization)
  Sender: FDA-Public Use
  Company Number: 2004BI000876

PATIENT
  Age: 57 Year
  Sex: Male
  Weight: 122.4712 kg

DRUGS (6)
  1. AVONEX [Suspect]
     Indication: MULTIPLE SCLEROSIS
     Dosage: 30 UG QW IM
     Route: 030
     Dates: start: 19990101, end: 20010101
  2. MAG-OX [Concomitant]
  3. ECOTRIN [Concomitant]
  4. NEURONTIN [Concomitant]
  5. BACLOFEN [Concomitant]
  6. LIPITOR [Concomitant]

REACTIONS (9)
  - BACTERAEMIA [None]
  - COMA [None]
  - CONDITION AGGRAVATED [None]
  - HYPOTENSION [None]
  - MULTIPLE SCLEROSIS [None]
  - MUSCLE SPASMS [None]
  - MYOCARDIAL INFARCTION [None]
  - PNEUMONIA [None]
  - SLEEP DISORDER [None]
